FAERS Safety Report 18745511 (Version 1)
Quarter: 2021Q1

REPORT INFORMATION
  Report Type: Spontaneous
  Country: US (occurrence: US)
  Receive Date: 20210115
  Receipt Date: 20210115
  Transmission Date: 20210419
  Serious: Yes (Other)
  Sender: FDA-Public Use
  Company Number: US-BAYER-2021-018331

PATIENT
  Sex: Female

DRUGS (1)
  1. ALKA?SELTZER PLUS MAXIMUM STRENGTH DAY AND NIGHT COLD AND FLU POWERMAX GELS [Suspect]
     Active Substance: ACETAMINOPHEN\DEXTROMETHORPHAN HYDROBROMIDE\DOXYLAMINE SUCCINATE\PHENYLEPHRINE HYDROCHLORIDE
     Dosage: UNK
     Route: 065

REACTIONS (4)
  - Foreign body in throat [Unknown]
  - Incorrect dose administered [None]
  - Retching [Unknown]
  - Dyspnoea [None]
